FAERS Safety Report 6330986-X (Version None)
Quarter: 2009Q3

REPORT INFORMATION
  Report Type: 
  Country: None (occurrence: None)
  Receive Date: 20090827
  Receipt Date: 20090821
  Transmission Date: 20100115
  Serious: Yes (Other)
  Sender: FDA-Public Use
  Company Number: US-ELI_LILLY_AND_COMPANY-US200908004965

PATIENT
  Age: 69 Year
  Sex: Male

DRUGS (2)
  1. HUMALOG [Suspect]
  2. HUMALOG [Suspect]

REACTIONS (6)
  - BALANCE DISORDER [None]
  - CARDIAC DISORDER [None]
  - DEAFNESS [None]
  - DIABETIC RETINOPATHY [None]
  - MACULAR DEGENERATION [None]
  - VERTEBRAL INJURY [None]
